FAERS Safety Report 18910535 (Version 3)
Quarter: 2021Q1

REPORT INFORMATION
  Report Type: Spontaneous
  Country: GB (occurrence: GB)
  Receive Date: 20210218
  Receipt Date: 20210326
  Transmission Date: 20210420
  Serious: Yes (Death, Hospitalization, Other)
  Sender: FDA-Public Use
  Company Number: GB-TEVA-2021-GB-1877884

PATIENT
  Age: 68 Year
  Sex: Male
  Weight: 103.6 kg

DRUGS (10)
  1. LENALIDOMIDE [Suspect]
     Active Substance: LENALIDOMIDE
     Indication: PLASMA CELL MYELOMA
     Dosage: UNK
     Route: 065
  2. LENALIDOMIDE [Suspect]
     Active Substance: LENALIDOMIDE
     Indication: PLASMA CELL LEUKAEMIA
     Dosage: 25 MILLIGRAM DAILY; EACH DAY FOR 14 DAYS, UNIT DOSE : 25 MG
     Route: 048
     Dates: start: 20190508, end: 20190521
  3. DEXAMETHASONE. [Suspect]
     Active Substance: DEXAMETHASONE
     Indication: PLASMA CELL LEUKAEMIA
     Dosage: UNK
     Route: 065
  4. VELCADE [Suspect]
     Active Substance: BORTEZOMIB
     Indication: PLASMA CELL LEUKAEMIA
     Dosage: UNK
     Route: 065
  5. DEXAMETHASONE. [Suspect]
     Active Substance: DEXAMETHASONE
     Indication: PLASMA CELL MYELOMA
     Dosage: DAY 1, 4, 8, 11 , UNIT DOSE : 40 MG
     Route: 048
     Dates: start: 20190508, end: 20190521
  6. DARATUMUMAB [Suspect]
     Active Substance: DARATUMUMAB
     Indication: PLASMA CELL MYELOMA
     Dosage: DAY 1, 8, 15, UNIT DOSE : 1660 MG/KG
     Route: 042
     Dates: start: 20190509, end: 20190521
  7. CYCLOPHOSPHAMIDE. [Suspect]
     Active Substance: CYCLOPHOSPHAMIDE
     Indication: PLASMA CELL MYELOMA
     Dosage: DAY 1, 8
     Route: 048
     Dates: start: 20190508, end: 20190521
  8. DARATUMUMAB [Suspect]
     Active Substance: DARATUMUMAB
     Indication: PLASMA CELL LEUKAEMIA
     Dosage: UNK
     Route: 065
  9. CYCLOPHOSPHAMIDE. [Suspect]
     Active Substance: CYCLOPHOSPHAMIDE
     Indication: PLASMA CELL LEUKAEMIA
     Dosage: UNK
     Route: 065
  10. VELCADE [Suspect]
     Active Substance: BORTEZOMIB
     Indication: PLASMA CELL MYELOMA
     Dosage: DAY 1, 4, 8, 11, UNIT DOSE : 1.3 MG/M2
     Route: 058
     Dates: start: 20190508, end: 20190521

REACTIONS (8)
  - Oxygen saturation decreased [Unknown]
  - Lethargy [Unknown]
  - Respirovirus test positive [Unknown]
  - Atrial fibrillation [Unknown]
  - Encephalopathy [Fatal]
  - Blood pressure systolic decreased [Unknown]
  - Fungal test positive [Recovered/Resolved]
  - Cold sweat [Unknown]

NARRATIVE: CASE EVENT DATE: 20190516
